FAERS Safety Report 8406454-8 (Version None)
Quarter: 2012Q2

REPORT INFORMATION
  Report Type: 
  Country: None (occurrence: None)
  Receive Date: 20120604
  Receipt Date: 20120525
  Transmission Date: 20120825
  Serious: Yes (Life-Threatening, Hospitalization)
  Sender: FDA-Public Use
  Company Number: MX-SANOFI-AVENTIS-2012SA034757

PATIENT
  Age: 22 Month
  Sex: Female
  Weight: 7.5 kg

DRUGS (4)
  1. CIPROFLOXACIN [Suspect]
     Route: 042
  2. IMIGLUCERASE [Suspect]
     Indication: GAUCHER'S DISEASE
     Dosage: EVERY TWO WEEKS.
     Route: 042
  3. CEFOTAXIME [Suspect]
     Route: 042
  4. DICLOXACILLIN [Concomitant]
     Route: 042

REACTIONS (8)
  - HYPERTENSION [None]
  - TONIC CLONIC MOVEMENTS [None]
  - CARDIAC ARREST [None]
  - PYREXIA [None]
  - CYANOSIS [None]
  - BRADYCARDIA [None]
  - SYSTEMIC INFLAMMATORY RESPONSE SYNDROME [None]
  - LEUKOCYTOSIS [None]
